FAERS Safety Report 24204612 (Version 2)
Quarter: 2024Q3

REPORT INFORMATION
  Report Type: Spontaneous
  Country: CN (occurrence: CN)
  Receive Date: 20240813
  Receipt Date: 20240821
  Transmission Date: 20241016
  Serious: Yes (Life-Threatening, Hospitalization, Other)
  Sender: ACCORD
  Company Number: CN-Accord-440151

PATIENT
  Age: 58 Year
  Sex: Male

DRUGS (2)
  1. CAPECITABINE [Suspect]
     Active Substance: CAPECITABINE
     Indication: Rectal neoplasm
     Dosage: ON THE FIRST 14 DAYS OF EACH 21-DAY CYCLE
     Route: 048
  2. OXALIPLATIN [Concomitant]
     Active Substance: OXALIPLATIN
     Indication: Rectal neoplasm
     Dosage: ON DAY 1
     Route: 042

REACTIONS (6)
  - Cardiac arrest [Recovered/Resolved]
  - Cardiogenic shock [Recovered/Resolved]
  - Cardiotoxicity [Recovered/Resolved]
  - Oliguria [Recovered/Resolved]
  - Gastrointestinal haemorrhage [Recovered/Resolved]
  - Pulmonary oedema [Recovered/Resolved]
